FAERS Safety Report 17239620 (Version 1)
Quarter: 2020Q1

REPORT INFORMATION
  Report Type: Spontaneous
  Country: US (occurrence: US)
  Receive Date: 20200106
  Receipt Date: 20200106
  Transmission Date: 20200409
  Serious: No
  Sender: FDA-Public Use
  Company Number: US-EPIC PHARMA LLC-2019EPC00148

PATIENT

DRUGS (2)
  1. TRAMADOL (ZYDUS) [Suspect]
     Active Substance: TRAMADOL HYDROCHLORIDE
  2. DOXYCYCLINE HYCLATE. [Suspect]
     Active Substance: DOXYCYCLINE HYCLATE

REACTIONS (3)
  - Dyspnoea [Unknown]
  - Unevaluable event [Unknown]
  - Hypersensitivity [Unknown]
